FAERS Safety Report 11272327 (Version 1)
Quarter: 2015Q3

REPORT INFORMATION
  Report Type: Spontaneous
  Country: US (occurrence: US)
  Receive Date: 20150715
  Receipt Date: 20150715
  Transmission Date: 20151125
  Serious: Yes (Hospitalization)
  Sender: FDA-Public Use
  Company Number: US-TEVA-578055USA

PATIENT
  Sex: Male
  Weight: 87.62 kg

DRUGS (1)
  1. BACLOFEN. [Suspect]
     Active Substance: BACLOFEN
     Indication: MUSCLE SPASMS
     Dates: start: 1995

REACTIONS (6)
  - Dyspnoea [Unknown]
  - Oesophageal spasm [Unknown]
  - Oesophageal motility disorder [Unknown]
  - Cough [Unknown]
  - Muscle spasms [Unknown]
  - Gastrooesophageal reflux disease [Unknown]
